FAERS Safety Report 9459302 (Version 9)
Quarter: 2015Q1

REPORT INFORMATION
  Report Type: Report from Study
  Country: CA (occurrence: CA)
  Receive Date: 20130815
  Receipt Date: 20150220
  Transmission Date: 20150721
  Serious: Yes (Hospitalization)
  Sender: FDA-Public Use
  Company Number: CA-INCYTE CORPORATION-2013IN000580

PATIENT
  Age: 57 Year
  Sex: Male

DRUGS (14)
  1. HYDREA [Concomitant]
     Active Substance: HYDROXYUREA
     Indication: PRODUCT USED FOR UNKNOWN INDICATION
     Route: 065
  2. LIPITOR [Concomitant]
     Active Substance: ATORVASTATIN CALCIUM
     Indication: PRODUCT USED FOR UNKNOWN INDICATION
     Dosage: 40 MG; UNKNOWN
  3. HYDROXYUREA. [Concomitant]
     Active Substance: HYDROXYUREA
     Indication: PRODUCT USED FOR UNKNOWN INDICATION
     Dosage: 500 MG, QD
     Route: 065
  4. JAKAFI [Suspect]
     Active Substance: RUXOLITINIB
     Dosage: 5 MG, BID
     Route: 065
     Dates: end: 201410
  5. MICARDISPLUS [Concomitant]
     Active Substance: HYDROCHLOROTHIAZIDE\TELMISARTAN
     Dosage: 80 MG, QD
     Route: 065
  6. ASA [Concomitant]
     Active Substance: ASPIRIN
     Indication: PRODUCT USED FOR UNKNOWN INDICATION
     Dosage: 81 MG, QD
  7. JAKAFI [Suspect]
     Active Substance: RUXOLITINIB
     Indication: MYELOFIBROSIS
     Dosage: 15 MG, BID
     Route: 048
     Dates: start: 20130307, end: 20130528
  8. JAKAFI [Suspect]
     Active Substance: RUXOLITINIB
     Dosage: 10 MG, BID
     Route: 048
     Dates: start: 201306, end: 201404
  9. JAKAFI [Suspect]
     Active Substance: RUXOLITINIB
     Dosage: 20 MG, BID
     Route: 048
     Dates: start: 20130307
  10. JAKAFI [Suspect]
     Active Substance: RUXOLITINIB
     Dosage: 20 MG, BID
     Route: 048
     Dates: start: 20130528
  11. JAKAFI [Suspect]
     Active Substance: RUXOLITINIB
     Dosage: 20 MG, BID
     Route: 048
     Dates: start: 20140128
  12. BISOPROLOL [Concomitant]
     Active Substance: BISOPROLOL
     Indication: PRODUCT USED FOR UNKNOWN INDICATION
     Dosage: 10 MG; UNKNOWN
  13. MICARDISPLUS [Concomitant]
     Active Substance: HYDROCHLOROTHIAZIDE\TELMISARTAN
     Indication: PRODUCT USED FOR UNKNOWN INDICATION
     Dosage: 80 MG, QD
     Route: 065
  14. ASA [Concomitant]
     Active Substance: ASPIRIN
     Dosage: 150 MG, QD
     Route: 065

REACTIONS (18)
  - Acute myeloid leukaemia [Unknown]
  - Ear infection [Unknown]
  - Platelet count decreased [Unknown]
  - Heart rate increased [Unknown]
  - Gingival bleeding [Unknown]
  - Hypotension [Recovering/Resolving]
  - Splenomegaly [Recovered/Resolved]
  - Decubitus ulcer [Unknown]
  - Abscess [Unknown]
  - Hepatomegaly [Unknown]
  - Pleural effusion [Recovered/Resolved]
  - Ear disorder [Unknown]
  - Tonsillitis [Unknown]
  - Abdominal discomfort [Unknown]
  - Pneumonia [Recovered/Resolved]
  - Fatigue [Unknown]
  - Muscle spasms [Recovering/Resolving]
  - White blood cell count increased [Unknown]

NARRATIVE: CASE EVENT DATE: 20130312
